FAERS Safety Report 19695061 (Version 1)
Quarter: 2021Q3

REPORT INFORMATION
  Report Type: Spontaneous
  Country: SG (occurrence: SG)
  Receive Date: 20210813
  Receipt Date: 20210813
  Transmission Date: 20211014
  Serious: Yes (Other)
  Sender: FDA-Public Use
  Company Number: SG-KVK-TECH, INC-20210800094

PATIENT

DRUGS (10)
  1. PHENTERMINE HYDROCHLORIDE UNSPECIFIED [Suspect]
     Active Substance: PHENTERMINE HYDROCHLORIDE
     Dosage: 30 MILLIGRAM, QD
     Route: 065
     Dates: start: 2020, end: 2020
  2. ATENOLOL. [Concomitant]
     Active Substance: ATENOLOL
     Indication: BLOOD PRESSURE ABNORMAL
     Dosage: UNK
  3. ATENOLOL. [Concomitant]
     Active Substance: ATENOLOL
     Dosage: 25 MILLIGRAM, UNKNOWN
  4. TOPIRAMATE. [Suspect]
     Active Substance: TOPIRAMATE
     Dosage: 25 MILLIGRAM, QD
     Route: 065
     Dates: start: 202010
  5. TOPIRAMATE. [Suspect]
     Active Substance: TOPIRAMATE
     Indication: WEIGHT DECREASED
     Dosage: 25 MILLIGRAM, QD
     Route: 065
     Dates: start: 2020, end: 2020
  6. VITAMINS NOS [Concomitant]
     Active Substance: VITAMINS
     Indication: PRODUCT USED FOR UNKNOWN INDICATION
  7. ATORVASTATIN [Concomitant]
     Active Substance: ATORVASTATIN
     Indication: PRODUCT USED FOR UNKNOWN INDICATION
  8. ATENOLOL. [Concomitant]
     Active Substance: ATENOLOL
     Dosage: 50 MILLIGRAM, UNKNOWN
     Dates: start: 202007
  9. PHENTERMINE HYDROCHLORIDE UNSPECIFIED [Suspect]
     Active Substance: PHENTERMINE HYDROCHLORIDE
     Indication: WEIGHT DECREASED
     Dosage: 15 MILLIGRAM, QD
     Route: 065
     Dates: start: 2020, end: 2020
  10. TOPIRAMATE. [Suspect]
     Active Substance: TOPIRAMATE
     Dosage: 50 MILLIGRAM, QD
     Route: 065
     Dates: start: 202007, end: 2020

REACTIONS (2)
  - Hypertension [Recovering/Resolving]
  - Nephropathy toxic [Recovered/Resolved]

NARRATIVE: CASE EVENT DATE: 2020
